FAERS Safety Report 4364030-0 (Version None)
Quarter: 2004Q2

REPORT INFORMATION
  Report Type: 
  Country: None (occurrence: None)
  Receive Date: 20040520
  Receipt Date: 20040520
  Transmission Date: 20050107
  Serious: Yes (Hospitalization)
  Sender: FDA-Public Use
  Company Number: None

PATIENT
  Age: 82 Year
  Sex: Male

DRUGS (1)
  1. INDOMETHACIN [Suspect]
     Indication: PAIN
     Dosage: 50 MG TID ORAL
     Route: 048
     Dates: start: 20040215, end: 20040221

REACTIONS (2)
  - FLUID OVERLOAD [None]
  - RENAL FAILURE [None]
